FAERS Safety Report 13952599 (Version 2)
Quarter: 2017Q4

REPORT INFORMATION
  Report Type: Spontaneous
  Country: US (occurrence: US)
  Receive Date: 20170911
  Receipt Date: 20171010
  Transmission Date: 20180320
  Serious: Yes (Other)
  Sender: FDA-Public Use
  Company Number: PHEH2017US028755

PATIENT
  Age: 70 Year
  Sex: Female
  Weight: 49 kg

DRUGS (1)
  1. FARYDAK [Suspect]
     Active Substance: PANOBINOSTAT
     Indication: PLASMA CELL MYELOMA
     Dosage: 20 MG, QD
     Route: 048
     Dates: start: 20170821, end: 20170901

REACTIONS (6)
  - Atrial fibrillation [Recovered/Resolved]
  - Syncope [Unknown]
  - Extrasystoles [Unknown]
  - Dizziness [Unknown]
  - Palpitations [Unknown]
  - Dyspnoea [Unknown]

NARRATIVE: CASE EVENT DATE: 20170905
